FAERS Safety Report 6501563-2 (Version None)
Quarter: 2009Q4

REPORT INFORMATION
  Report Type: 
  Country: None (occurrence: None)
  Receive Date: 20091215
  Receipt Date: 20091215
  Transmission Date: 20100525
  Serious: Yes (Life-Threatening, Hospitalization, Other)
  Sender: FDA-Public Use
  Company Number: None

PATIENT
  Sex: Female
  Weight: 85.2762 kg

DRUGS (4)
  1. AVASTIN [Suspect]
     Indication: BREAST CANCER
     Dosage: 10MG/KG/ 850MG Q2WEEKS IV DRIP
     Route: 041
     Dates: start: 20091023, end: 20091204
  2. AVASTIN [Suspect]
     Indication: CHEMOTHERAPY
     Dosage: 10MG/KG/ 850MG Q2WEEKS IV DRIP
     Route: 041
     Dates: start: 20091023, end: 20091204
  3. PACLITAXEL [Suspect]
     Dosage: 175MG/M2/ 350MG 1 DOSE IV DRIP
     Route: 041
     Dates: start: 20091204, end: 20091204
  4. DOXIL [Concomitant]

REACTIONS (1)
  - STEVENS-JOHNSON SYNDROME [None]
